FAERS Safety Report 20881644 (Version 3)
Quarter: 2022Q2

REPORT INFORMATION
  Report Type: Report from Study
  Country: GB (occurrence: GB)
  Receive Date: 20220527
  Receipt Date: 20220613
  Transmission Date: 20220721
  Serious: Yes (Life-Threatening, Hospitalization, Other)
  Sender: FDA-Public Use
  Company Number: GB-CELLTRION INC.-2021GB019323

PATIENT

DRUGS (326)
  1. TRASTUZUMAB [Suspect]
     Active Substance: TRASTUZUMAB
     Indication: Breast cancer metastatic
     Dosage: 336 MG, EVERY 3 WEEK, DOSE FORM: 230, (CUMULATIVE DOSE TO FIRST REACTION:14383.333 MG); DOSAGE FORM:
     Route: 042
     Dates: start: 20180518, end: 20190427
  2. TRASTUZUMAB [Suspect]
     Active Substance: TRASTUZUMAB
     Dosage: 336 MG, EVERY 3 WEEK, DOSE FORM: 230, (CUMULATIVE DOSE TO FIRST REACTION:14383.333 MG)
     Route: 042
     Dates: start: 20180518, end: 20190427
  3. TRASTUZUMAB [Suspect]
     Active Substance: TRASTUZUMAB
     Dosage: 336 MG, EVERY 3 WEEK, DOSE FORM: 230, (CUMULATIVE DOSE TO FIRST REACTION:14383.333 MG)
     Route: 042
     Dates: start: 20180518, end: 20190427
  4. TRASTUZUMAB [Suspect]
     Active Substance: TRASTUZUMAB
     Dosage: 450 MG 1 TOTAL (LOADING DOSE) DOSE FORM:230; DOSAGE FORM: INFUSION, SOLUTION
     Route: 041
     Dates: start: 20151105, end: 20151105
  5. TRASTUZUMAB [Suspect]
     Active Substance: TRASTUZUMAB
     Dosage: 450 MG 1 TOTAL (LOADING DOSE) DOSE FORM:230
     Route: 041
     Dates: start: 20151105, end: 20151105
  6. TRASTUZUMAB [Suspect]
     Active Substance: TRASTUZUMAB
     Dosage: 450 MG 1 TOTAL (LOADING DOSE) DOSE FORM:230
     Route: 041
     Dates: start: 20151105, end: 20151105
  7. TRASTUZUMAB [Suspect]
     Active Substance: TRASTUZUMAB
     Dosage: 350 MG, EVERY 3 WEEK (MAINTENANCE DOSE; DOSE FORM: 230; CUMULATIVE DOSE: 33.333332 MG); DOSAGE FORM:
     Route: 042
     Dates: start: 20151203, end: 20180427
  8. TRASTUZUMAB [Suspect]
     Active Substance: TRASTUZUMAB
     Dosage: 350 MG, EVERY 3 WEEK (MAINTENANCE DOSE; DOSE FORM: 230; CUMULATIVE DOSE: 33.333332 MG)
     Route: 042
     Dates: start: 20151203, end: 20180427
  9. TRASTUZUMAB [Suspect]
     Active Substance: TRASTUZUMAB
     Dosage: 350 MG, EVERY 3 WEEK (MAINTENANCE DOSE; DOSE FORM: 230; CUMULATIVE DOSE: 33.333332 MG)
     Route: 042
     Dates: start: 20151203, end: 20180427
  10. TRASTUZUMAB [Suspect]
     Active Substance: TRASTUZUMAB
     Dosage: 450 MG, EVERY 3 WEEK (LOADING DOSE; DOSE FORM: 293)
     Route: 042
     Dates: start: 20151105, end: 20151105
  11. TRASTUZUMAB [Suspect]
     Active Substance: TRASTUZUMAB
     Dosage: 350 MG EVERY 3 WEEKS (MAINTENANCE DOSE) CUMULATIVE DOSE: 1767.56 MG
     Route: 042
     Dates: start: 20151203, end: 20180427
  12. TRASTUZUMAB [Suspect]
     Active Substance: TRASTUZUMAB
     Dosage: 350 MG EVERY 3 WEEKS (MAINTENANCE DOSE)
     Route: 042
     Dates: start: 20151203, end: 20180427
  13. TRASTUZUMAB [Suspect]
     Active Substance: TRASTUZUMAB
     Dosage: 336 MG, EVERY 3 WEEKS
     Route: 042
     Dates: start: 20180518, end: 20190427
  14. TRASTUZUMAB [Suspect]
     Active Substance: TRASTUZUMAB
     Dosage: 336 MG, EVERY 3 WEEKS
     Route: 042
     Dates: start: 20180518, end: 20190427
  15. TRASTUZUMAB [Suspect]
     Active Substance: TRASTUZUMAB
     Dosage: 450 MG (LOADING DOSE)
     Route: 041
     Dates: start: 20151105, end: 20151105
  16. TRASTUZUMAB [Suspect]
     Active Substance: TRASTUZUMAB
     Dosage: 450 MG (LOADING DOSE)
     Route: 041
     Dates: start: 20151105, end: 20151105
  17. TRASTUZUMAB [Suspect]
     Active Substance: TRASTUZUMAB
     Dosage: 450 MG, LOADING DOSE (DOSE FORM:120)
     Route: 042
     Dates: start: 20151105, end: 20151105
  18. TRASTUZUMAB [Suspect]
     Active Substance: TRASTUZUMAB
     Dosage: 350 MG EVERY 2 WEEKS/MAINTENANCE DOSE (DOSE FORM: 120)
     Route: 042
     Dates: start: 20151203
  19. TRASTUZUMAB [Suspect]
     Active Substance: TRASTUZUMAB
     Dosage: 336 MG, TIW (DATE AND TIME OF LAST ADMINISTRATION 27 APR 2019)
     Route: 042
     Dates: start: 20180518
  20. TRASTUZUMAB [Suspect]
     Active Substance: TRASTUZUMAB
     Dosage: 350 MG, TIW MAINTENANCE DOSE (DATE AND TIME OF LAST ADMINISTRATION 27 APR 2018)
     Route: 042
     Dates: start: 20151203, end: 20180427
  21. TRASTUZUMAB [Suspect]
     Active Substance: TRASTUZUMAB
     Dosage: 450 MG, ONCE/SINGLE (LOADING DOSE)
     Route: 042
     Dates: start: 20151105, end: 20151105
  22. TRASTUZUMAB [Suspect]
     Active Substance: TRASTUZUMAB
     Dosage: 450 MG, SINGLE (LOADING DOSE)(CUMULATIVE DOSE: 1767.56 MG)
     Route: 041
     Dates: start: 20151105
  23. TRASTUZUMAB [Suspect]
     Active Substance: TRASTUZUMAB
     Dosage: 336 MG, EVERY 3 WEEKS, PHARMCEUTICAL DOSAGE FORM: 230 (CUMULATIVE DOSE: 14383.333 MG)
     Route: 042
     Dates: start: 20180518, end: 20190327
  24. TRASTUZUMAB [Suspect]
     Active Substance: TRASTUZUMAB
     Dosage: 336 MG, EVERY 3 WEEKS, PHARMCEUTICAL DOSAGE FORM: 230 (CUMULATIVE DOSE: 14383.333 MG)
     Route: 042
     Dates: start: 20180518, end: 20190327
  25. TRASTUZUMAB [Suspect]
     Active Substance: TRASTUZUMAB
     Dosage: 450 MILLIGRAM, Q3W (LOADING DOSE; DOSE FORM: 293)  (DOSAGE FORM: 120; CUMULATIVE DOSE TO FIRST REACT
     Route: 041
     Dates: start: 20151105
  26. TRASTUZUMAB [Suspect]
     Active Substance: TRASTUZUMAB
     Dosage: 350 MILLIGRAM, Q3W, (MAINTENANCE DOSE; DOSE FORM: 230; CUMULATIVE DOSE: 33.333332 MG)
     Route: 042
     Dates: start: 20151203, end: 20180327
  27. TRASTUZUMAB [Suspect]
     Active Substance: TRASTUZUMAB
     Dosage: 350 MILLIGRAM, Q3W, (MAINTENANCE DOSE; DOSE FORM: 230; CUMULATIVE DOSE: 33.333332 MG)
     Route: 042
     Dates: start: 20151203, end: 20180327
  28. TRASTUZUMAB [Suspect]
     Active Substance: TRASTUZUMAB
     Dosage: 450 MG, QD1 TOTAL (LOADING DOSE) (DOSE FORM:230) (DOSGE FORM: INFUSION, SOLUTION)(CUMULATIVE DOSE TO
     Route: 042
     Dates: start: 20151105, end: 20151105
  29. TRASTUZUMAB [Suspect]
     Active Substance: TRASTUZUMAB
     Dosage: 350 MG, EVERY 3 WEEK (MAINTENANCE DOSE; DOSE FORM: 230; CUMULATIVE DOSE: 34.322 MG MG); DOSAGE FORM:
     Route: 042
     Dates: start: 20151203, end: 20180427
  30. TRASTUZUMAB [Suspect]
     Active Substance: TRASTUZUMAB
     Dosage: 336 MG, EVERY 3 WEEKS
     Route: 042
     Dates: start: 20180518, end: 20190327
  31. TRASTUZUMAB [Suspect]
     Active Substance: TRASTUZUMAB
     Dosage: 450 MG, SINGLE (LOADING DOSE)
     Route: 041
     Dates: start: 20151105
  32. TRASTUZUMAB [Suspect]
     Active Substance: TRASTUZUMAB
     Dosage: 336 MILLIGRAM, Q3WK (DOSE FORM: 230, CUMULATIVE DOSE: 14383.333 MG)
     Route: 042
     Dates: start: 20180518, end: 20190427
  33. TRASTUZUMAB [Suspect]
     Active Substance: TRASTUZUMAB
     Dosage: 350 MG, MAINTENANCE DOSE DRUG INTERVAL 3 WEEK (DOSE FORM: 230)
     Route: 042
     Dates: start: 20151203, end: 20180427
  34. TRASTUZUMAB [Suspect]
     Active Substance: TRASTUZUMAB
     Dosage: 450 MG, DRUG INTERVAL 1 TOTAL (DOSE FORM: 230)
     Route: 042
     Dates: start: 20151105, end: 20151105
  35. TRASTUZUMAB [Suspect]
     Active Substance: TRASTUZUMAB
     Dosage: 450 MG, SINGLE (LOADING DOSE)
     Route: 041
     Dates: start: 20151105, end: 20151105
  36. DOCETAXEL [Suspect]
     Active Substance: DOCETAXEL
     Indication: Breast cancer metastatic
     Dosage: 124 MG, EVERY 3 WEEK/Q3W (PREVIOUS CUMULATIVE DOSE: 147.61905 MG)
     Route: 042
     Dates: start: 20151106, end: 20151106
  37. DOCETAXEL [Suspect]
     Active Substance: DOCETAXEL
     Dosage: 124 MG, EVERY 3 WEEK/Q3W (PREVIOUS CUMULATIVE DOSE: 147.61905 MG)
     Route: 042
     Dates: start: 20151106, end: 20151106
  38. DOCETAXEL [Suspect]
     Active Substance: DOCETAXEL
     Dosage: 124 MG, Q3W (CUMULATIVE DOSE: 124 MG)
     Route: 042
     Dates: start: 20151106, end: 20151106
  39. DOCETAXEL [Suspect]
     Active Substance: DOCETAXEL
     Dosage: 124 MG, EVERY 3 WEEKS
     Route: 042
     Dates: start: 20151106, end: 20151106
  40. DOCETAXEL [Suspect]
     Active Substance: DOCETAXEL
     Indication: Breast cancer metastatic
     Dosage: 124 MG, Q2WEEKS (DOSE FORM: 120)
     Route: 042
     Dates: start: 20151106, end: 20151106
  41. DOCETAXEL [Suspect]
     Active Substance: DOCETAXEL
     Dosage: 124 MG, EVERY 3 WEEKS
     Route: 042
     Dates: start: 20151106, end: 20151106
  42. PACLITAXEL [Suspect]
     Active Substance: PACLITAXEL
     Indication: Breast cancer metastatic
     Dosage: 138 MG, EVERY 4 WEEKS (CUMULATIVE DOSE: 9.857142 MG)
     Route: 042
     Dates: start: 20151203, end: 20160203
  43. PACLITAXEL [Suspect]
     Active Substance: PACLITAXEL
     Indication: Product used for unknown indication
     Dosage: 138 MG, EVERY 4 WEEKS (CUMULATIVE DOSE: 9.857142 MG)
     Route: 042
     Dates: start: 20151203, end: 20160203
  44. PACLITAXEL [Suspect]
     Active Substance: PACLITAXEL
     Dosage: 138 MG, EVERY 4 WEEKS (CUMULATIVE DOSE: 9.857142 MG)
     Route: 042
     Dates: start: 20151203, end: 20160203
  45. PACLITAXEL [Suspect]
     Active Substance: PACLITAXEL
     Dosage: 138 MG, EVERY 4 WEEKS (CUMULATIVE DOSE: 9.857142 MG)
     Route: 042
     Dates: start: 20151203, end: 20160203
  46. PACLITAXEL [Suspect]
     Active Substance: PACLITAXEL
     Dosage: 139 MG, EVERY 4 WEEKS (CUMULATIVE DOSE: 44.67857 MG)
     Route: 042
     Dates: start: 20151210
  47. PACLITAXEL [Suspect]
     Active Substance: PACLITAXEL
     Dosage: 139 MG, EVERY 4 WEEKS (CUMULATIVE DOSE: 44.67857 MG)
     Route: 042
     Dates: start: 20151210
  48. PACLITAXEL [Suspect]
     Active Substance: PACLITAXEL
     Dosage: 139 MG, EVERY 4 WEEKS (CUMULATIVE DOSE: 44.67857 MG)
     Route: 042
     Dates: start: 20151210
  49. PACLITAXEL [Suspect]
     Active Substance: PACLITAXEL
     Dosage: 139 MG, EVERY 4 WEEKS (CUMULATIVE DOSE: 44.67857 MG)
     Route: 042
     Dates: start: 20151210
  50. PACLITAXEL [Suspect]
     Active Substance: PACLITAXEL
     Dosage: 68 MG, EVERY 1 WEEKS (DATE OF LAST ADMINISTERED DOSE: 10-MAR-2016; CUMULATIVE DOSE: 903.4286  MG)
     Route: 042
     Dates: start: 20160303, end: 20160310
  51. PACLITAXEL [Suspect]
     Active Substance: PACLITAXEL
     Dosage: 68 MG, EVERY 1 WEEKS (DATE OF LAST ADMINISTERED DOSE: 10-MAR-2016; CUMULATIVE DOSE: 903.4286  MG)
     Route: 042
     Dates: start: 20160303, end: 20160310
  52. PACLITAXEL [Suspect]
     Active Substance: PACLITAXEL
     Dosage: 68 MG, EVERY 1 WEEKS (DATE OF LAST ADMINISTERED DOSE: 10-MAR-2016; CUMULATIVE DOSE: 903.4286  MG)
     Route: 042
     Dates: start: 20160303, end: 20160310
  53. PACLITAXEL [Suspect]
     Active Substance: PACLITAXEL
     Dosage: 68 MG, EVERY 1 WEEKS (DATE OF LAST ADMINISTERED DOSE: 10-MAR-2016; CUMULATIVE DOSE: 903.4286  MG)
     Route: 042
     Dates: start: 20160303, end: 20160310
  54. PACLITAXEL [Suspect]
     Active Substance: PACLITAXEL
     Dosage: 102 MG, EVERY 4 WEEKS (CUMULATIVE DOSE: 13.143 MG, PREVIOUS: 236.78572 MG)
     Route: 042
     Dates: start: 20160204, end: 20160218
  55. PACLITAXEL [Suspect]
     Active Substance: PACLITAXEL
     Dosage: 102 MG, EVERY 4 WEEKS (CUMULATIVE DOSE: 236.78572 MG)
     Route: 042
     Dates: start: 20160204, end: 20160218
  56. PACLITAXEL [Suspect]
     Active Substance: PACLITAXEL
     Dosage: 102 MG, EVERY 4 WEEKS (CUMULATIVE DOSE: 236.78572 MG)
     Route: 042
     Dates: start: 20160204, end: 20160218
  57. PACLITAXEL [Suspect]
     Active Substance: PACLITAXEL
     Dosage: 102 MG, EVERY 4 WEEKS (CUMULATIVE DOSE: 236.78572 MG)
     Route: 042
     Dates: start: 20160204, end: 20160218
  58. PACLITAXEL [Suspect]
     Active Substance: PACLITAXEL
     Dosage: 120 MG, EVERY 4 WEEKS (34.75 MG CD, 884 MG, 4.92857142 MG; CUMULATIVE DOSE: 229.5 MG)
     Route: 042
     Dates: start: 20160204
  59. PACLITAXEL [Suspect]
     Active Substance: PACLITAXEL
     Dosage: 138 MG, Q4WEEKS/Q4W (CUMULATIVE DOSE:13.143 MG)
     Route: 042
     Dates: start: 20151203, end: 20160203
  60. PACLITAXEL [Suspect]
     Active Substance: PACLITAXEL
     Dosage: 139 MG, Q4WEEKS/Q4 (CUMULATIVE DOSE: 13.143 MG)
     Route: 042
     Dates: start: 20151210
  61. PACLITAXEL [Suspect]
     Active Substance: PACLITAXEL
     Dosage: 102 MG, Q4WEEKS
     Route: 042
     Dates: start: 20160204, end: 20160218
  62. PACLITAXEL [Suspect]
     Active Substance: PACLITAXEL
     Dosage: 68 MG, 1/WEEK (CUMULATIVE DOSE: 13.143 MG)
     Route: 042
     Dates: start: 20160303, end: 20160310
  63. PACLITAXEL [Suspect]
     Active Substance: PACLITAXEL
     Dosage: 68 MG, 1/WEEK/QW (CUMULATIVE DOSE: 13.143 MG)
     Route: 042
     Dates: start: 20160310
  64. PACLITAXEL [Suspect]
     Active Substance: PACLITAXEL
     Dosage: 134 MG, EVERY 4 WEEKS (CUMULATIVE DOSE: 229.5 MG)
     Route: 042
     Dates: start: 20151210
  65. PACLITAXEL [Suspect]
     Active Substance: PACLITAXEL
     Dosage: 125 MG, EVERY 4 WEEKS, 34.75 MG CD, 884 MG, 4.92857142 MG
     Route: 042
     Dates: start: 20160204
  66. PACLITAXEL [Suspect]
     Active Substance: PACLITAXEL
     Dosage: 139 MILLIGRAM, Q28D (Q4W)
     Route: 042
     Dates: start: 20151210
  67. PACLITAXEL [Suspect]
     Active Substance: PACLITAXEL
     Dosage: 120 MILLIGRAM, MONTHLY, EVERY 4 WEEKS (CUMULATIVE DOSE: 44.67857 MG) (DOSAGE FORM:120; CUMULATIVE DO
     Route: 042
     Dates: start: 20151210
  68. PACLITAXEL [Suspect]
     Active Substance: PACLITAXEL
     Dosage: 120 MILLIGRAM, MONTHLY, EVERY 4 WEEKS (CUMULATIVED DOSE: 229.5 MG)/(CUMULATIVE DOSE: 236.78572 MG) (
     Route: 042
     Dates: start: 20160204, end: 20160218
  69. PACLITAXEL [Suspect]
     Active Substance: PACLITAXEL
     Dosage: 138 MILLIGRAM, MONTHLY, EVERY 4 WEEKS (CUMULATIVE DOSE: 229.5 MG) (DOSAGE FORM: 120; CUMULATIVE DOSE
     Route: 042
     Dates: start: 20151203, end: 20160203
  70. PACLITAXEL [Suspect]
     Active Substance: PACLITAXEL
     Dosage: 120 MILLIGRAM, MONTHLY, EVERY 4 WEEKS (34.75 MG CD, 884 MG, 4.92857142 MG; CUMULATIVE) (DOSAGE FORM:
     Route: 042
     Dates: start: 20160204, end: 20160218
  71. PACLITAXEL [Suspect]
     Active Substance: PACLITAXEL
     Dosage: 120 MG, Q4W (CUMULATIVED DOSE: 229.5 MG)
     Route: 042
     Dates: start: 20160204, end: 20160218
  72. PACLITAXEL [Suspect]
     Active Substance: PACLITAXEL
     Dosage: 120 MG, Q4W 120 MILLIGRAM, 34.75 MG CD, 884 MG, 4.92857142 MG)(CUMULATIVE DOSE TO FIRST REACTION: 27
     Route: 042
     Dates: start: 20160204, end: 20160218
  73. PACLITAXEL [Suspect]
     Active Substance: PACLITAXEL
     Dosage: 139 MILLIGRAM, Q4WEEKS
     Route: 042
     Dates: start: 20151210
  74. PACLITAXEL [Suspect]
     Active Substance: PACLITAXEL
     Dosage: 138 MILLIGRAM, Q4WEEKS
     Route: 042
     Dates: start: 20151203, end: 20160203
  75. PACLITAXEL [Suspect]
     Active Substance: PACLITAXEL
     Dosage: 102 MILLIGRAM, Q4WEEKS
     Route: 042
     Dates: start: 20160204, end: 20160218
  76. PACLITAXEL [Suspect]
     Active Substance: PACLITAXEL
     Dosage: 68 MILLIGRAM, 1/WEEK
     Route: 042
     Dates: start: 20160303, end: 20160310
  77. PACLITAXEL [Suspect]
     Active Substance: PACLITAXEL
     Dosage: 120 MG, Q4W MONTHLY, EVERY 4 WEEKS (CUMULATIVE DOSE: 44.67857 MG)
     Route: 042
     Dates: start: 20151210
  78. PACLITAXEL [Suspect]
     Active Substance: PACLITAXEL
     Dosage: 68 MG, QW ((DATE OF LAST ADMINISTERED DOSE: 10-MAR-2)
     Route: 042
     Dates: start: 20160303, end: 20160310
  79. PACLITAXEL [Suspect]
     Active Substance: PACLITAXEL
     Dosage: 138 MG, Q4W (MONTHLY, EVERY 4 WEEKS (CUMULATIVE)
     Route: 042
     Dates: start: 20151203, end: 20160203
  80. PACLITAXEL [Suspect]
     Active Substance: PACLITAXEL
     Dosage: 102 MG, Q4W ((CUMULATIVED DOSE: 229.5 MG)
     Route: 042
     Dates: start: 20160204, end: 20160218
  81. PACLITAXEL [Suspect]
     Active Substance: PACLITAXEL
     Dosage: 120 MG, Q4W (MONTHLY, EVERY 4 WEEKS (34.75 MG CD,)884 MG, 4.92857142 MG; CUMULATIVE
     Route: 042
     Dates: start: 20160204, end: 20160218
  82. PACLITAXEL [Suspect]
     Active Substance: PACLITAXEL
     Dosage: 139 MG, Q4W
     Route: 042
     Dates: start: 20151210
  83. PACLITAXEL [Suspect]
     Active Substance: PACLITAXEL
     Dosage: 102 MG, EVERY 4 WEEKS (CUMULATIVE DOSE: 236.78572 MG)
     Route: 042
     Dates: start: 20160204, end: 20160218
  84. PACLITAXEL [Suspect]
     Active Substance: PACLITAXEL
     Dosage: 120 MG, Q4W MONTHLY, EVERY 4 WEEKS (CUMULATIVE DOSE: 236.78572 MG)
     Route: 042
     Dates: start: 20160204, end: 20160218
  85. PACLITAXEL [Suspect]
     Active Substance: PACLITAXEL
     Dosage: 68 MG, QW 68 MG, EVERY 1 WEEKS (DATE OF LAST ADMINISTER
     Route: 042
     Dates: start: 20160303, end: 20160310
  86. PACLITAXEL [Suspect]
     Active Substance: PACLITAXEL
     Dosage: 139 MG, EVERY 4 WEEKS
     Route: 042
     Dates: start: 20151210
  87. PACLITAXEL [Suspect]
     Active Substance: PACLITAXEL
     Dosage: 138 MG, EVERY 4 WEEKS
     Route: 042
     Dates: start: 20151203, end: 20160203
  88. PACLITAXEL [Suspect]
     Active Substance: PACLITAXEL
     Dosage: 102 MG, DRUG INTERVAL 4 WEEK
     Route: 042
     Dates: start: 20160204, end: 20160218
  89. PACLITAXEL [Suspect]
     Active Substance: PACLITAXEL
     Dosage: 68 MILLIGRAM, DRUG INTERVAL 1 WEEK
     Route: 042
     Dates: start: 20160303, end: 20160310
  90. PACLITAXEL [Suspect]
     Active Substance: PACLITAXEL
     Indication: Breast cancer metastatic
     Dosage: 139 MG, EVERY 4 WEEKS
     Route: 042
     Dates: start: 20151210
  91. PACLITAXEL [Suspect]
     Active Substance: PACLITAXEL
     Dosage: 102 MG, EVERY 4 WEEKS
     Route: 042
     Dates: start: 20160204, end: 20160218
  92. PACLITAXEL [Suspect]
     Active Substance: PACLITAXEL
     Dosage: 68 MG, WEEKLY
     Route: 042
     Dates: start: 20160303, end: 20160310
  93. PACLITAXEL [Suspect]
     Active Substance: PACLITAXEL
     Dosage: 138 MG, EVERY 4 WEEKS (CUMULATIVE DOSE: 9.857142 MG)
     Route: 042
     Dates: start: 20151203, end: 20160203
  94. PACLITAXEL [Suspect]
     Active Substance: PACLITAXEL
     Dosage: 138 MILLIGRAM, Q4W
     Route: 042
     Dates: start: 20151203, end: 20160203
  95. PACLITAXEL [Suspect]
     Active Substance: PACLITAXEL
     Dosage: 139 MILLIGRAM, MONTHLY (DOSE FORM: 120)
     Route: 042
     Dates: start: 20151210
  96. PACLITAXEL [Suspect]
     Active Substance: PACLITAXEL
     Dosage: 102 MILLIGRAM, MONTHLY (DOSE FORM: 120) (CUMULATIVE DOSE: 236.78572MG)
     Route: 042
     Dates: start: 20160204, end: 20160218
  97. PACLITAXEL [Suspect]
     Active Substance: PACLITAXEL
     Dosage: 68 MG, QW (DOSE FORM: 120)
     Route: 042
     Dates: start: 20160303
  98. PACLITAXEL [Suspect]
     Active Substance: PACLITAXEL
     Dosage: 44.6 MG, EVERY 4 DAYS, 34.75 MG CD, 884 MG, 4.92857142 MG
     Route: 042
     Dates: start: 20151210
  99. PACLITAXEL [Suspect]
     Active Substance: PACLITAXEL
     Dosage: 68 MG, WEEKLY
     Route: 042
     Dates: start: 20160303, end: 20160310
  100. PACLITAXEL [Suspect]
     Active Substance: PACLITAXEL
     Dosage: 139, Q4W (CUMULATIVE DOSE TO FIRST REACTION:  13.143MG)
     Route: 041
     Dates: start: 20151210
  101. PACLITAXEL [Suspect]
     Active Substance: PACLITAXEL
     Dosage: 102 MG, WEEKLY (CUMULATIVE DOSE TO FIRST REACTION: 13.143 MG)
     Route: 042
     Dates: start: 20160303, end: 20160310
  102. PACLITAXEL [Suspect]
     Active Substance: PACLITAXEL
     Dosage: 125 MG, Q4W (CUMULATIVE DOSE TO FIRST REACTION: 13.143 MG)
     Route: 042
     Dates: start: 20160204, end: 20160218
  103. PACLITAXEL [Suspect]
     Active Substance: PACLITAXEL
     Dosage: 134 MG, Q4W (CUMULATIVE DOSE TO FIRST REACTION: 13.143 MG)
     Route: 042
     Dates: start: 20151210
  104. PACLITAXEL [Suspect]
     Active Substance: PACLITAXEL
     Dosage: 139 MG, EVERY 4 WEEKS
     Route: 042
     Dates: start: 20151210
  105. PACLITAXEL [Suspect]
     Active Substance: PACLITAXEL
     Dosage: 139 MG, EVERY 4 WEEKS
     Route: 042
     Dates: start: 20151210
  106. PACLITAXEL [Suspect]
     Active Substance: PACLITAXEL
     Dosage: 139 MG, EVERY 4 WEEKS
     Route: 042
     Dates: start: 20151210
  107. PACLITAXEL [Suspect]
     Active Substance: PACLITAXEL
     Indication: Breast cancer metastatic
     Dosage: 102 MG, EVERY 4 WEEKS
     Route: 042
     Dates: start: 20151203, end: 20160203
  108. PACLITAXEL [Suspect]
     Active Substance: PACLITAXEL
     Dosage: 139 MG, EVERY 4 WEEKS
     Route: 042
     Dates: start: 20151210
  109. PACLITAXEL [Suspect]
     Active Substance: PACLITAXEL
     Dosage: 102 MG, EVERY 4 WEEKS
     Route: 042
     Dates: start: 20160204, end: 20160218
  110. PACLITAXEL [Suspect]
     Active Substance: PACLITAXEL
     Dosage: 68 MG, EVERY WEEK
     Route: 042
     Dates: start: 20160303, end: 20160310
  111. PACLITAXEL [Suspect]
     Active Substance: PACLITAXEL
     Dosage: 68 MG, EVERY WEEK
     Route: 042
     Dates: start: 20160303, end: 20160310
  112. PACLITAXEL [Suspect]
     Active Substance: PACLITAXEL
     Dosage: 68 MG, EVERY WEEK
     Route: 042
     Dates: start: 20160303, end: 20160310
  113. PACLITAXEL [Suspect]
     Active Substance: PACLITAXEL
     Dosage: 68 MG, EVERY WEEK
     Route: 042
     Dates: start: 20160303, end: 20160310
  114. PACLITAXEL [Suspect]
     Active Substance: PACLITAXEL
     Indication: Breast cancer metastatic
     Dosage: 68 MG, 1/WEEK (CUMULATIVE DOSE: 903.4286 MG)
     Route: 042
     Dates: start: 20160303, end: 20160310
  115. PACLITAXEL [Suspect]
     Active Substance: PACLITAXEL
     Dosage: 68 MG, 1/WEEK (CUMULATIVE DOSE: 903.4286 MG)
     Route: 042
     Dates: start: 20160303, end: 20160310
  116. PACLITAXEL [Suspect]
     Active Substance: PACLITAXEL
     Dosage: 68 MG, 1/WEEK (CUMULATIVE DOSE: 903.4286 MG)
     Route: 042
     Dates: start: 20160303, end: 20160310
  117. PACLITAXEL [Suspect]
     Active Substance: PACLITAXEL
     Dosage: 68 MG, 1/WEEK (CUMULATIVE DOSE: 903.4286 MG)
     Route: 042
     Dates: start: 20160303, end: 20160310
  118. PACLITAXEL [Suspect]
     Active Substance: PACLITAXEL
     Dosage: 139 MG, Q4WEEKS (CUMULATIVE DOSE: 44.67857 MG)
     Route: 042
     Dates: start: 20151210
  119. PACLITAXEL [Suspect]
     Active Substance: PACLITAXEL
     Dosage: 139 MG, Q4WEEKS (CUMULATIVE DOSE: 44.67857 MG)
     Route: 042
     Dates: start: 20151210
  120. PACLITAXEL [Suspect]
     Active Substance: PACLITAXEL
     Dosage: 139 MG, Q4WEEKS (CUMULATIVE DOSE: 44.67857 MG)
     Route: 042
     Dates: start: 20151210
  121. PACLITAXEL [Suspect]
     Active Substance: PACLITAXEL
     Dosage: 139 MG, Q4WEEKS (CUMULATIVE DOSE: 44.67857 MG)
     Route: 042
     Dates: start: 20151210
  122. PACLITAXEL [Suspect]
     Active Substance: PACLITAXEL
     Dosage: 138 MG, Q4WEEKS CUMULATIVE DOSE TO FIRST REACTION: 9.857142 MG)
     Route: 042
     Dates: start: 20151203, end: 20160203
  123. PACLITAXEL [Suspect]
     Active Substance: PACLITAXEL
     Dosage: 138 MG, Q4WEEKS (CUMULATIVE DOSE TO FIRST REACTION: 9.857142 MG)
     Route: 042
     Dates: start: 20151203, end: 20160203
  124. PACLITAXEL [Suspect]
     Active Substance: PACLITAXEL
     Dosage: 138 MG, Q4WEEKS (CUMULATIVE DOSE TO FIRST REACTION: 9.857142 MG)
     Route: 042
     Dates: start: 20151203, end: 20160203
  125. PACLITAXEL [Suspect]
     Active Substance: PACLITAXEL
     Dosage: 138 MG, Q4WEEKS (CUMULATIVE DOSE TO FIRST REACTION: 9.857142 MG)
     Route: 042
     Dates: start: 20151203, end: 20160203
  126. PACLITAXEL [Suspect]
     Active Substance: PACLITAXEL
     Dosage: 102 MG, Q4WEEKS (CUMULATIVE DOSE TO FIRST REACTION: 236.78572MG)
     Route: 042
     Dates: start: 20160204, end: 20160218
  127. PACLITAXEL [Suspect]
     Active Substance: PACLITAXEL
     Dosage: 102 MG, Q4WEEKS (CUMULATIVE DOSE TO FIRST REACTION: 236.78572MG)
     Route: 042
     Dates: start: 20160204, end: 20160218
  128. PACLITAXEL [Suspect]
     Active Substance: PACLITAXEL
     Dosage: 102 MG, Q4WEEKS (CUMULATIVE DOSE TO FIRST REACTION: 236.78572MG)
     Route: 042
     Dates: start: 20160204, end: 20160218
  129. PACLITAXEL [Suspect]
     Active Substance: PACLITAXEL
     Dosage: 102 MG, Q4WEEKS (CUMULATIVE DOSE TO FIRST REACTION: 236.78572MG)
     Route: 042
     Dates: start: 20160204, end: 20160218
  130. PERTUZUMAB [Suspect]
     Active Substance: PERTUZUMAB
     Indication: Breast cancer metastatic
     Dosage: 420 MG, EVERY 3 WEEKS (MAINTENANCE DOSE, DOSE FORM: 230; CUMULATIVE DOSE; 40.0 MG)
     Route: 042
     Dates: start: 20151203
  131. PERTUZUMAB [Suspect]
     Active Substance: PERTUZUMAB
     Dosage: 420 MG, EVERY 3 WEEKS (MAINTENANCE DOSE) (DOSE FORM: 230)
     Route: 042
     Dates: start: 20151203
  132. PERTUZUMAB [Suspect]
     Active Substance: PERTUZUMAB
     Dosage: 840 MG, TOTAL (LOADING DOSE; DOSE FORM: 230)
     Route: 042
     Dates: start: 20151105, end: 20151105
  133. PERTUZUMAB [Suspect]
     Active Substance: PERTUZUMAB
     Dosage: 840 MG, TOTAL (LOADING DOSE, INFUSION, SOLUTION; DOSE FORM: 230)
     Route: 042
     Dates: start: 20151105, end: 20151105
  134. PERTUZUMAB [Suspect]
     Active Substance: PERTUZUMAB
     Dosage: 840 MG, TOTAL (LOADING DOSE, INFUSION, SOLUTION; DOSE FORM: 23)
     Route: 042
     Dates: start: 20151105, end: 20151105
  135. PERTUZUMAB [Suspect]
     Active Substance: PERTUZUMAB
     Dosage: 840 MG, TOTAL (LOADING DOSE; DOSE FORM: 230)
     Route: 042
     Dates: start: 20151105, end: 20151105
  136. PERTUZUMAB [Suspect]
     Active Substance: PERTUZUMAB
     Dosage: 420 MG, EVERY 3 WEEKS (MAINTENANCE DOSE, LOADING DOSE, INFUSION, SOLUTION; DOSE FORM: 293; CUMULATIV
     Route: 042
     Dates: start: 20151203
  137. PERTUZUMAB [Suspect]
     Active Substance: PERTUZUMAB
     Dosage: 420 MG, EVERY 3 WEEKS (MAINTENANCE DOSE, LOADING DOSE, INFUSION, SOLUTION; DOSE FORM: 293; CUMULATIV
     Route: 042
     Dates: start: 20151203
  138. PERTUZUMAB [Suspect]
     Active Substance: PERTUZUMAB
     Dosage: 420 MG, EVERY 3 WEEKS (MAINTENANCE DOSE, LOADING DOSE, INFUSION, SOLUTION; DOSE FORM: 230; CUMULATIV
     Route: 042
     Dates: start: 20151203
  139. PERTUZUMAB [Suspect]
     Active Substance: PERTUZUMAB
     Dosage: 840 MG, 1 TOTAL (LOADING DOSE; DOSE FORM: 230)
     Route: 042
     Dates: start: 20151105, end: 20151105
  140. PERTUZUMAB [Suspect]
     Active Substance: PERTUZUMAB
     Dosage: 420 MG, EVERY 3 WEEKS (MAINTENANCE DOSE)
     Route: 042
     Dates: start: 20151203
  141. PERTUZUMAB [Suspect]
     Active Substance: PERTUZUMAB
     Dosage: 840 MG, 1 TOTAL (LOADING DOSE)
     Route: 042
     Dates: start: 20151105, end: 20151105
  142. PERTUZUMAB [Suspect]
     Active Substance: PERTUZUMAB
     Dosage: 840 MG, SINGLE (LOADING DOSE)
     Route: 042
     Dates: start: 20151105, end: 20151105
  143. PERTUZUMAB [Suspect]
     Active Substance: PERTUZUMAB
     Dosage: 840 MG, 1 TOTAL (ONCE/SINGLE) PHARMACEUTICAL DOSAGE FORM 230
     Route: 042
     Dates: start: 20151105
  144. PERTUZUMAB [Suspect]
     Active Substance: PERTUZUMAB
     Dosage: 840 MILLIGRAM, SINGLE (LOADING DOSE)
     Route: 042
     Dates: start: 20151105
  145. PERTUZUMAB [Suspect]
     Active Substance: PERTUZUMAB
     Dosage: 420 MG, TIW (MAINTENANCE DOSE)
     Route: 042
     Dates: start: 20151203
  146. PERTUZUMAB [Suspect]
     Active Substance: PERTUZUMAB
     Dosage: 420 MILLIGRAM, Q3W, (MAINTENANCE DOSE, DF FORM: 230; CUMULATIVE DOSE; 40.0 MG) (DOSAGE FORM: 231; CU
     Route: 042
     Dates: start: 20151203
  147. PERTUZUMAB [Suspect]
     Active Substance: PERTUZUMAB
     Dosage: 840 MILLIGRAM (LOADING DOSE)
     Route: 042
     Dates: start: 20151105
  148. PERTUZUMAB [Suspect]
     Active Substance: PERTUZUMAB
     Dosage: 840 MG, 1 TOTAL (LOADING DOSE; DOSE FORM: 230)
     Route: 042
     Dates: start: 20151105
  149. PERTUZUMAB [Suspect]
     Active Substance: PERTUZUMAB
     Dosage: 840 MG, 1 TOTAL (LOADING DOSE; DOSE FORM: 230)
     Route: 042
     Dates: start: 20151105
  150. PERTUZUMAB [Suspect]
     Active Substance: PERTUZUMAB
     Indication: Breast cancer metastatic
     Dosage: 840 MG, TOTAL (DOSE FORM: 120)/840 MG, TOTAL; IN TOTAL
     Route: 042
     Dates: start: 20151105, end: 20151105
  151. PERTUZUMAB [Suspect]
     Active Substance: PERTUZUMAB
     Dosage: 420 MILLIGRAM, Q3W, MAINTENANCE DOSE (DOSE FORM: 120)/420 MG, Q3W
     Route: 042
     Dates: start: 20151203
  152. PERTUZUMAB [Suspect]
     Active Substance: PERTUZUMAB
     Dosage: 420 MG, TIW (MAINTENANCE DOSE)
     Route: 042
     Dates: start: 20151105, end: 20151105
  153. PERTUZUMAB [Suspect]
     Active Substance: PERTUZUMAB
     Indication: Breast cancer metastatic
     Dosage: 840 MG, LOADING DOSE 1 TOTAL (DOSE FORM: 230)
     Route: 042
     Dates: start: 20151105, end: 20151105
  154. PERTUZUMAB [Suspect]
     Active Substance: PERTUZUMAB
     Dosage: 420 MG, DRUG INTERVAL EVERY 3 WEEKS (DOSE FORM: 230, CUMULATIVE DOSE: 40.0 MG)
     Route: 042
     Dates: start: 20151203
  155. PERTUZUMAB [Suspect]
     Active Substance: PERTUZUMAB
     Dosage: 840 MG, TOTAL (LOADING DOSE), DOSE FORM: 230
     Route: 042
     Dates: start: 20151105
  156. PERTUZUMAB [Suspect]
     Active Substance: PERTUZUMAB
     Dosage: 840 MG, TOTAL (LOADING DOSE), DOSE FORM: 230
     Route: 042
     Dates: start: 20151105
  157. PERTUZUMAB [Suspect]
     Active Substance: PERTUZUMAB
     Dosage: 420 MG, EVERY 3 WEEKS (MAINTENANCE DOSE), DOSE FORM: 230
     Route: 042
     Dates: start: 20151203
  158. PERTUZUMAB [Suspect]
     Active Substance: PERTUZUMAB
     Dosage: 420 MG, EVERY 3 WEEKS (MAINTENANCE DOSE), DOSE FORM: 230
     Route: 042
     Dates: start: 20151203
  159. HERCEPTIN [Suspect]
     Active Substance: TRASTUZUMAB
     Indication: Breast cancer metastatic
     Dosage: 450 MG, TOTAL (LOADING DOSE, 16.6 MG, MAINTENANCE DOSE; DOSE FORM: 230)
     Route: 042
     Dates: start: 20151105, end: 20151105
  160. HERCEPTIN [Suspect]
     Active Substance: TRASTUZUMAB
     Dosage: 350 MG, EVERY 3 WEEKS (MAINTENANCE DOSE, DATE OF LAST ADMINISTERED DOSE: 27-APR-2018; DOSE FORM: 230
     Route: 042
     Dates: start: 20151203
  161. HERCEPTIN [Suspect]
     Active Substance: TRASTUZUMAB
     Dosage: 336 MILLIGRAM, Q3W (DATE AND TIME OF LAST ADMINISTRATION 27 APR 2019)
     Route: 042
     Dates: start: 20180518
  162. HERCEPTIN [Suspect]
     Active Substance: TRASTUZUMAB
     Dosage: 350 MILLIGRAM, Q3W,(MAINTENANCE DOSE, DATE OF LAST ADMINISTERED DOSE: 27)(DOSAGE FORM: 120; CUMULATI
     Route: 042
     Dates: start: 20151203
  163. HERCEPTIN [Suspect]
     Active Substance: TRASTUZUMAB
     Dosage: 450 MILLIGRAM, TOTAL (LOADING DOSE) (DOSAGE FORM: 120)
     Route: 042
     Dates: start: 20151105, end: 20151105
  164. HERCEPTIN [Suspect]
     Active Substance: TRASTUZUMAB
     Dosage: 350 MG, TIW MAINTENANCE DOSE (DATE AND TIME OF LAST ADMINISTRATION 27 APR 2018)(CUMULATIVE DOSE TO F
     Route: 042
     Dates: start: 20151203
  165. HERCEPTIN [Suspect]
     Active Substance: TRASTUZUMAB
     Dosage: 450 MG, TOTAL, ONCE/SINGLE (LOADING DOSE)
     Route: 042
     Dates: start: 20151105, end: 20151105
  166. HERCEPTIN [Suspect]
     Active Substance: TRASTUZUMAB
     Dosage: 450 MG, 1X; IN TOTAL (CUMULATIVE DOSE TO FIRST REACTION: 1767.56 MG)
     Route: 041
     Dates: start: 20151105, end: 20151105
  167. HERCEPTIN [Suspect]
     Active Substance: TRASTUZUMAB
     Dosage: 450 MILLIGRAM, LOADING DOSE, 16.6 MG, MAINTENANCE DOSE
     Route: 041
     Dates: start: 20151105, end: 20151105
  168. HERCEPTIN [Suspect]
     Active Substance: TRASTUZUMAB
     Dosage: 336 MG, TIW (DATE AND TIME OF LAST ADMINISTRATION 27 APR 2019)
     Route: 042
     Dates: start: 20180518
  169. HERCEPTIN [Suspect]
     Active Substance: TRASTUZUMAB
     Dosage: MAINTENANCE DOSE, DATE OF LAST ADMINISTERED DOSE: 27-APR-2018
     Route: 042
     Dates: start: 20180518
  170. HERCEPTIN [Suspect]
     Active Substance: TRASTUZUMAB
     Dosage: MAINTENANCE DOSE, DATE OF LAST ADMINISTERED DOSE: 27-APR-2018
     Route: 042
     Dates: start: 20151203
  171. HERCEPTIN [Suspect]
     Active Substance: TRASTUZUMAB
     Dosage: UNK, 1/WEEK (300 UNK, TIW)
     Route: 042
     Dates: start: 20151203, end: 20180427
  172. HERCEPTIN [Suspect]
     Active Substance: TRASTUZUMAB
     Dosage: 450 MG (450 MG, 1X)
     Route: 042
     Dates: start: 20151105, end: 20151105
  173. HERCEPTIN [Suspect]
     Active Substance: TRASTUZUMAB
     Indication: Breast cancer metastatic
     Dosage: 336 MG, TIW (DATE AND TIME OF LAST ADMINISTRATION 27 APR 2019)
     Route: 042
     Dates: start: 20180518
  174. HERCEPTIN [Suspect]
     Active Substance: TRASTUZUMAB
     Dosage: 300 UNK, TIW; (DOSAGE FORM: 230)
     Route: 042
     Dates: start: 20151203, end: 20180427
  175. HERCEPTIN [Suspect]
     Active Substance: TRASTUZUMAB
     Dosage: 450 MG, 1X; IN TOTAL (DOSAGE FORM: 230)
     Route: 042
     Dates: start: 20151105, end: 20151105
  176. PACLITAXEL [Suspect]
     Active Substance: PACLITAXEL
     Indication: Breast cancer metastatic
     Dosage: 134 MG, EVERY 4 WEEKS (CUMULATIVE DOSE: 229.5 MG)
     Route: 042
     Dates: start: 20151210
  177. PACLITAXEL [Suspect]
     Active Substance: PACLITAXEL
     Indication: Product used for unknown indication
     Dosage: 120 MG, EVERY 4 WEEKS (34.75 MG CD, 884 MG, 4.92857142 MG; CUMULATIVE DOSE: 229.5 MG)
     Route: 042
     Dates: start: 20160204
  178. PACLITAXEL [Suspect]
     Active Substance: PACLITAXEL
     Dosage: 102 MG, EVERY 4 WEEKS (CUMULATIVED DOSE: 229.5 MG)/ (CUMULATIVE DOSE: 236.78572 MG)
     Route: 042
     Dates: start: 20160204, end: 20160218
  179. PACLITAXEL [Suspect]
     Active Substance: PACLITAXEL
     Dosage: 68 MG, EVERY 1 WEEK/QW (DATE OF LAST ADMINISTERED DOSE: 10-MAR-2016; CUMULATIVE DOSE: 229.5 MG)
     Route: 042
     Dates: start: 20160303
  180. PACLITAXEL [Suspect]
     Active Substance: PACLITAXEL
     Dosage: 138 MG EVERY 4 WEEKS (CUMULATIVE DOSE: 229.5 MG)
     Route: 042
     Dates: start: 20151203, end: 20160203
  181. PACLITAXEL [Suspect]
     Active Substance: PACLITAXEL
     Dosage: 138 MG EVERY 4 WEEKS (CUMULATIVE DOSE: 229.5 MG)
     Route: 042
     Dates: start: 20151203
  182. PACLITAXEL [Suspect]
     Active Substance: PACLITAXEL
     Dosage: 138 MG EVERY 4 WEEKS (CUMULATIVE DOSE: 229.5 MG)(DOSAGE FORM:120)
     Route: 042
     Dates: start: 20151210
  183. PACLITAXEL [Suspect]
     Active Substance: PACLITAXEL
     Dosage: 138 MG EVERY 4 WEEKS/Q4W (CUMULATIVE DOSE: 229.5 MG)(CUMULATIVE DOSE TO FIRST REACTION: 9.857142MG)
     Route: 042
     Dates: start: 20151203, end: 20161203
  184. PACLITAXEL [Suspect]
     Active Substance: PACLITAXEL
     Dosage: 102 MG, Q4W (EVERY 4 WEEKS (CUMULATIVE DOSE: 236.78572 MG))
     Route: 042
     Dates: start: 20160204, end: 20160218
  185. PACLITAXEL [Suspect]
     Active Substance: PACLITAXEL
     Dosage: 68 MG, QW ((DATE OF LAST ADMINISTERED DOSE: 10-MAR-2016; CUMULATIVE DOSE: 229.5 MG)
     Route: 042
     Dates: start: 20160303
  186. PACLITAXEL [Suspect]
     Active Substance: PACLITAXEL
     Dosage: 138 MG, Q4W (CUMULATIVE DOSE: 229.5MG)
     Route: 042
     Dates: start: 20151203, end: 20161203
  187. PACLITAXEL [Suspect]
     Active Substance: PACLITAXEL
     Dosage: 138 MG, Q4W (CUMULATIVE DOSE: 229.5MG)
     Route: 042
     Dates: start: 20151210
  188. PACLITAXEL [Suspect]
     Active Substance: PACLITAXEL
     Dosage: 138 MG, Q4W (CUMULATIVE DOSE: 229.5MG)
     Route: 042
     Dates: start: 20151203
  189. PACLITAXEL [Suspect]
     Active Substance: PACLITAXEL
     Dosage: 120 MG, Q4W ((34.75 MG CD, 884 MG, 4.92857142 MG; CD: 229.5 MG)
     Route: 042
     Dates: start: 20160204
  190. ATORVASTATIN [Concomitant]
     Active Substance: ATORVASTATIN
     Indication: Product used for unknown indication
     Dosage: 40 MG, EVERY 1 DAY/QD (DOSE FORM: 245) (CUMD TO FIRST REA)
     Route: 048
     Dates: start: 20170701
  191. ATORVASTATIN [Concomitant]
     Active Substance: ATORVASTATIN
     Dosage: 40 MG, EVERY 1 DAY (DOSE FORM: 245)(CUMULATIVE DOSE TO FIRST REACTION: 23118.334 MG)(PHARMACEUTICAL
     Route: 048
     Dates: start: 20170701
  192. ATORVASTATIN [Concomitant]
     Active Substance: ATORVASTATIN
     Dosage: 40 MILLIGRAM, QD (40 MG, 1X/DAY)
     Route: 048
     Dates: start: 20170701
  193. ATORVASTATIN [Concomitant]
     Active Substance: ATORVASTATIN
     Dosage: 350 MILLIGRAM, Q3W, (MAINTENANCE; CUM DOSE: 33.333332 MG)
     Route: 048
  194. ATORVASTATIN [Concomitant]
     Active Substance: ATORVASTATIN
     Dosage: 40 MG, QD DOSE FORM: 245)(CUMD TO FIRST REA)
     Route: 048
     Dates: start: 20170701
  195. ATORVASTATIN [Concomitant]
     Active Substance: ATORVASTATIN
     Dosage: 40 MG, QD 40 MILLIGRAM, QD (40 MG, 1X/DAY)
     Route: 048
     Dates: start: 20170701
  196. ATORVASTATIN [Concomitant]
     Active Substance: ATORVASTATIN
     Indication: Product used for unknown indication
     Dosage: 40 MILLIGRAM, QD
     Route: 048
     Dates: start: 20170701
  197. ATORVASTATIN [Concomitant]
     Active Substance: ATORVASTATIN
     Dosage: 40 MG, DRUG INTERVAL 1 DAY 9DOSE FORM: 245)
     Route: 048
     Dates: start: 20170701
  198. ATORVASTATIN [Concomitant]
     Active Substance: ATORVASTATIN
     Dosage: 40 MG, QD (DOSE FORM: 245, CUMULATIVE DOSE: 23118.334 MG)
     Route: 048
     Dates: start: 20170701
  199. LOPERAMIDE [Concomitant]
     Active Substance: LOPERAMIDE
     Indication: Prophylaxis
     Dosage: 2 MG (4 TABLET TWICE A DAY FOR 3 DAYS; DOSE FORM: 245)
     Route: 048
     Dates: start: 20151203
  200. LOPERAMIDE [Concomitant]
     Active Substance: LOPERAMIDE
     Indication: Prophylaxis against diarrhoea
     Dosage: 4 TABLET TWICE A DAY FOR 3 DAYS (DOSE FORM: 245)
     Route: 048
     Dates: start: 20151203
  201. LOPERAMIDE [Concomitant]
     Active Substance: LOPERAMIDE
     Dosage: 4 DF, BID FOR 3 DAYS (DOSE FORM: 245)
     Route: 048
     Dates: start: 20151203
  202. LOPERAMIDE [Concomitant]
     Active Substance: LOPERAMIDE
     Dosage: 2 MG (4 TABLET TWICE A DAY FOR 3 DAYS)
     Route: 048
     Dates: start: 20151203
  203. LOPERAMIDE [Concomitant]
     Active Substance: LOPERAMIDE
     Dosage: 2 MG, UNK (4 TABLET TWICE A DAY FOR 3 DAYS)
     Route: 048
     Dates: start: 20151203
  204. LOPERAMIDE [Concomitant]
     Active Substance: LOPERAMIDE
     Dosage: 4 DOSAGE FORM, BID
     Route: 048
     Dates: start: 20151203
  205. LOPERAMIDE [Concomitant]
     Active Substance: LOPERAMIDE
     Dosage: 2 MILLIGRAM, BID, (4 TABLET TWICE A DAY FOR 3 DAYS)
     Route: 048
     Dates: start: 20151203
  206. LOPERAMIDE [Concomitant]
     Active Substance: LOPERAMIDE
     Dosage: 4 DF, BID FOR 3 DAYS
     Route: 048
     Dates: start: 20151203
  207. LOPERAMIDE [Concomitant]
     Active Substance: LOPERAMIDE
     Indication: Prophylaxis against diarrhoea
     Dosage: 2MG, 4 TABLET TWICE A DAY FOR 3 DAYS
     Route: 048
     Dates: start: 20151203
  208. LOPERAMIDE [Concomitant]
     Active Substance: LOPERAMIDE
     Indication: Prophylaxis
     Dosage: 4 TABLET TWICE A DAY FOR 3 DAYS (DOSE FORM:245)
     Route: 048
     Dates: start: 20151203
  209. TRAMADOL HYDROCHLORIDE [Concomitant]
     Active Substance: TRAMADOL HYDROCHLORIDE
     Indication: Prophylaxis
     Dosage: 50 MG (DOSE FORM: 5)
     Route: 048
     Dates: start: 20151105
  210. TRAMADOL HYDROCHLORIDE [Concomitant]
     Active Substance: TRAMADOL HYDROCHLORIDE
     Dosage: 50 MG, UNK
     Route: 048
     Dates: start: 20151105
  211. TRAMADOL HYDROCHLORIDE [Concomitant]
     Active Substance: TRAMADOL HYDROCHLORIDE
     Indication: Prophylaxis
     Dosage: 50 MILLIGRAM
     Route: 048
     Dates: start: 20151105
  212. TRAMADOL HYDROCHLORIDE [Concomitant]
     Active Substance: TRAMADOL HYDROCHLORIDE
     Dosage: 50 MILLIGRAM (DOSE FORM: 5)
     Route: 048
     Dates: start: 20151105
  213. ROSUVASTATIN [Concomitant]
     Active Substance: ROSUVASTATIN
     Indication: Product used for unknown indication
     Dosage: 5 MG (DOSE FORM:245)
     Route: 048
     Dates: start: 201806, end: 201911
  214. ROSUVASTATIN [Concomitant]
     Active Substance: ROSUVASTATIN
     Dosage: 5 MILLIGRAM, (START JUN-2018)
     Route: 048
     Dates: start: 201806, end: 201911
  215. ROSUVASTATIN [Concomitant]
     Active Substance: ROSUVASTATIN
     Dosage: DOSAGE FORM: 245
  216. ROSUVASTATIN [Concomitant]
     Active Substance: ROSUVASTATIN
     Dosage: 5 MG
     Route: 048
     Dates: start: 201806, end: 201911
  217. ROSUVASTATIN [Concomitant]
     Active Substance: ROSUVASTATIN
     Indication: Product used for unknown indication
     Dosage: 5 MILLIGRAM (DOSE FORM:245)
     Route: 048
     Dates: start: 201806, end: 201911
  218. ROSUVASTATIN [Concomitant]
     Active Substance: ROSUVASTATIN
     Dosage: 5 MILLIGRAM
     Route: 048
     Dates: start: 201806, end: 201911
  219. DEXAMETHASONE [Concomitant]
     Active Substance: DEXAMETHASONE
     Indication: Prophylaxis
     Dosage: 8 MILLIGRAM
     Route: 048
     Dates: start: 20151105
  220. DEXAMETHASONE [Concomitant]
     Active Substance: DEXAMETHASONE
     Dosage: 8 MILLIGRAM (DOSAGE FORM:245)
     Route: 048
     Dates: start: 20151105
  221. DEXAMETHASONE [Concomitant]
     Active Substance: DEXAMETHASONE
     Dosage: 8 MG, UNK
     Route: 048
     Dates: start: 20151105
  222. DEXAMETHASONE [Concomitant]
     Active Substance: DEXAMETHASONE
     Indication: Prophylaxis
     Dosage: 8 MILLIGRAM (DOSE FORM: 245)
     Route: 048
     Dates: start: 20151105
  223. TRIMETHOPRIM [Concomitant]
     Active Substance: TRIMETHOPRIM
     Indication: Urinary tract infection
     Dosage: 400 MILLIGRAM, (200 MG, 2X/DAY)
     Route: 048
     Dates: start: 20151210
  224. TRIMETHOPRIM [Concomitant]
     Active Substance: TRIMETHOPRIM
     Dosage: 200 MILLIGRAM, QD (DOSAGE FORM: 245)
     Route: 048
     Dates: start: 20151210
  225. TRIMETHOPRIM [Concomitant]
     Active Substance: TRIMETHOPRIM
     Dosage: 400 MG, QD (200 MG, 0.5)
     Route: 048
     Dates: start: 20151210
  226. TRIMETHOPRIM [Concomitant]
     Active Substance: TRIMETHOPRIM
     Dosage: 400 MG (400 MG)
     Route: 048
     Dates: start: 20151210
  227. TRIMETHOPRIM [Concomitant]
     Active Substance: TRIMETHOPRIM
     Indication: Urinary tract infection
     Dosage: 200 MG, 2X/DAY (DOSAGE FORM: 245)
     Route: 048
     Dates: start: 20151210
  228. METOCLOPRAMIDE [Concomitant]
     Active Substance: METOCLOPRAMIDE
     Indication: Prophylaxis
     Dosage: 10 MG (DOSE FORM: 245)
     Route: 048
     Dates: start: 20151203
  229. METOCLOPRAMIDE [Concomitant]
     Active Substance: METOCLOPRAMIDE
     Indication: Prophylaxis of nausea and vomiting
     Dosage: 10 MILLIGRAM
     Route: 048
     Dates: start: 20151223
  230. METOCLOPRAMIDE [Concomitant]
     Active Substance: METOCLOPRAMIDE
     Dosage: 10 MG, UNK
     Route: 048
     Dates: start: 20151223
  231. METOCLOPRAMIDE [Concomitant]
     Active Substance: METOCLOPRAMIDE
     Dosage: 10 MG, UNK
     Route: 048
     Dates: start: 20151203
  232. METOCLOPRAMIDE [Concomitant]
     Active Substance: METOCLOPRAMIDE
     Indication: Prophylaxis
     Dosage: 10 MILLIGRAM
     Route: 048
     Dates: start: 20151203
  233. METOCLOPRAMIDE [Concomitant]
     Active Substance: METOCLOPRAMIDE
     Indication: Prophylaxis of nausea and vomiting
     Dosage: 10 MILLIGRAM (DOSE FORM: 245)
     Route: 048
     Dates: start: 20151203
  234. RANITIDINE [Concomitant]
     Active Substance: RANITIDINE
     Indication: Prophylaxis
     Dosage: 150 MG, BID FOR 3 DAYS (1 TABLET TWICE A DAY FOR 3 DAYS; DOSE FORM: 245)
     Route: 048
     Dates: start: 20151203
  235. RANITIDINE [Concomitant]
     Active Substance: RANITIDINE
     Indication: Mucosal inflammation
     Dosage: 1 TABLET TWICE A DAY FOR 3 DAYS
     Route: 048
     Dates: start: 20151203
  236. RANITIDINE [Concomitant]
     Active Substance: RANITIDINE
     Dosage: 300 MILLIGRAM, QD (1 TABLET TWICE A DAY FOR 3 DAYS)
     Route: 048
     Dates: start: 20151203
  237. RANITIDINE [Concomitant]
     Active Substance: RANITIDINE
     Dosage: 150 MG, UNK (1 TABLET TWICE A DAY FOR 3 DAYS)
     Route: 048
     Dates: start: 20151203
  238. RANITIDINE [Concomitant]
     Active Substance: RANITIDINE
     Indication: Prophylaxis
     Dosage: 150 MG, UNK 1 TABLET TWICE A DAY FOR 3 DAYS (DOSE FORM: 245)
     Route: 048
     Dates: start: 20151203
  239. RANITIDINE [Concomitant]
     Active Substance: RANITIDINE
     Dosage: 150 MG, 1 TABLET TWICE A DAY FOR 3 DAYS
     Route: 048
     Dates: start: 20151203
  240. RAMIPRIL [Concomitant]
     Active Substance: RAMIPRIL
     Indication: Product used for unknown indication
     Dosage: 1.25 MG, EVERY 1 DAY (DOSE FORM: 245) (START DATE: 23-MAY-2017)
     Route: 048
     Dates: start: 20170523
  241. RAMIPRIL [Concomitant]
     Active Substance: RAMIPRIL
     Dosage: 1.25 MG, EVERY 0.5 DAY
     Route: 048
     Dates: start: 20170523
  242. RAMIPRIL [Concomitant]
     Active Substance: RAMIPRIL
     Dosage: 2.5 MG, EVERY 1 DAY (DOSE FORM: 245)(CUMULATIVE DOSE TO FIRST REACTION: 1347.3959 MG)
     Route: 048
     Dates: start: 20170523
  243. RAMIPRIL [Concomitant]
     Active Substance: RAMIPRIL
     Dosage: 1.25 MG, 2X/DAY (DOSE FORM: 245)
     Route: 048
     Dates: start: 20170523
  244. RAMIPRIL [Concomitant]
     Active Substance: RAMIPRIL
     Dosage: 2.5 MG, EVERY 1 DAY (DOSE FORM: 245)
     Route: 048
  245. RAMIPRIL [Concomitant]
     Active Substance: RAMIPRIL
     Dosage: 1.25 MG, BID (DOSE FORM: 245)
     Route: 048
     Dates: start: 20170523
  246. RAMIPRIL [Concomitant]
     Active Substance: RAMIPRIL
     Dosage: 2.5 MG, EVERY 1 DAY/QD
     Route: 048
     Dates: start: 20170523
  247. RAMIPRIL [Concomitant]
     Active Substance: RAMIPRIL
     Dosage: 1.25 MILLIGRAM, H (DOSAGE FORM:245)
     Route: 048
  248. RAMIPRIL [Concomitant]
     Active Substance: RAMIPRIL
     Dosage: 2.5 MILLIGRAM, (1.25 MG, 2X/DAY))
     Route: 048
     Dates: start: 20170523
  249. RAMIPRIL [Concomitant]
     Active Substance: RAMIPRIL
     Dosage: 1.25 MG 1.25 MILLIGRAM,1.25 MG, EVERY 1 DAY (START 23-MAY-2017)
     Route: 048
     Dates: start: 20170523
  250. RAMIPRIL [Concomitant]
     Active Substance: RAMIPRIL
     Dosage: 2.5 MG, QD (CUM DOSE TO FIRST REACTION 1347.3959 MG)
     Route: 048
     Dates: start: 20170523
  251. RAMIPRIL [Concomitant]
     Active Substance: RAMIPRIL
     Dosage: 2.5 MG 2.5 MILLIGRAM QD, START 23-MAY-2017
     Route: 048
  252. RAMIPRIL [Concomitant]
     Active Substance: RAMIPRIL
     Dosage: 2.5 MG, QD (1.25 MG, 2X/DAY)
     Route: 048
     Dates: start: 20170523
  253. RAMIPRIL [Concomitant]
     Active Substance: RAMIPRIL
     Dosage: 1.25 MG 1.25 MILLIGRAM, (1.25 MG, EVERY 0.5 DAY)
     Route: 048
     Dates: start: 20170523
  254. RAMIPRIL [Concomitant]
     Active Substance: RAMIPRIL
     Dosage: 1.25 MG
     Route: 048
     Dates: start: 20170523
  255. RAMIPRIL [Concomitant]
     Active Substance: RAMIPRIL
     Dosage: 2.5 MG 2.5 MILLIGRAM QD, START 23-MAY-2017
     Route: 048
     Dates: start: 20170523
  256. RAMIPRIL [Concomitant]
     Active Substance: RAMIPRIL
     Indication: Product used for unknown indication
     Dosage: 1.25 MILLIGRAM EVERY 0.5 DAY
     Route: 048
     Dates: start: 20170523
  257. RAMIPRIL [Concomitant]
     Active Substance: RAMIPRIL
     Dosage: 1.25 MG, 2X/DAY (DOSAGE FORM: 245)
     Route: 048
     Dates: start: 20170523
  258. ASPIRIN [Concomitant]
     Active Substance: ASPIRIN
     Indication: Product used for unknown indication
     Dosage: 75 MG EVERY 1 DAY (CUMULATIVE DOSE TO FIRST REACTION: 40421.875 MG, 245 DOSE FORM) (CUM DOSE : 40421
     Route: 048
     Dates: start: 20170523, end: 20170701
  259. ASPIRIN [Concomitant]
     Active Substance: ASPIRIN
     Dosage: 75 MG, QD (DOSE FOR: 245)
     Route: 048
     Dates: start: 20170701
  260. ASPIRIN [Concomitant]
     Active Substance: ASPIRIN
     Dosage: 75 MILLIGRAM, (75 MG, 1X/DAY)
     Route: 048
     Dates: start: 20170523, end: 20170701
  261. ASPIRIN [Concomitant]
     Active Substance: ASPIRIN
     Dosage: 75 MG, QD 75 MILLIGRAM, (75 MG, 1X/DAY)
     Route: 065
     Dates: start: 20170523, end: 20170701
  262. ASPIRIN [Concomitant]
     Active Substance: ASPIRIN
     Dosage: 75 MG, QD 75 MILLIGRAM, (75 MG, 1X/DAY) DOSE FORM: 245 (CUMULATIVE DOSE TO FIRST REACTION: 40421.875
     Route: 048
     Dates: start: 20170523, end: 20170701
  263. ASPIRIN [Concomitant]
     Active Substance: ASPIRIN
     Dosage: 75 MG, QD 75 MILLIGRAM, QD, (CUM DOSE : 40421)
     Route: 005
     Dates: start: 20170523, end: 20170701
  264. ASPIRIN [Concomitant]
     Active Substance: ASPIRIN
     Dosage: 75 MG, QD
     Route: 048
     Dates: start: 20170523, end: 20170701
  265. ASPIRIN [Concomitant]
     Active Substance: ASPIRIN
     Dosage: 75 MG, QD
     Route: 065
     Dates: start: 20170523, end: 20170701
  266. ASPIRIN [Concomitant]
     Active Substance: ASPIRIN
     Dosage: 75 MG, DRUG INTERVAL 1 DAY (DOSE FORM: 245)
     Route: 048
     Dates: start: 20170523, end: 20170701
  267. ASPIRIN [Concomitant]
     Active Substance: ASPIRIN
     Dosage: 75 MG, QD (DOSE FORM: 245, CUMULATIVE DOSE: 40421.875MG)
     Route: 048
     Dates: start: 20170523, end: 20170701
  268. ROSUVASTATIN CALCIUM [Concomitant]
     Active Substance: ROSUVASTATIN CALCIUM
     Indication: Product used for unknown indication
     Dosage: UNK
     Route: 065
  269. ROSUVASTATIN CALCIUM [Concomitant]
     Active Substance: ROSUVASTATIN CALCIUM
     Dosage: 5 MILLIGRAM DOSE FORM: 245
     Route: 048
     Dates: start: 201806, end: 201911
  270. ROSUVASTATIN CALCIUM [Concomitant]
     Active Substance: ROSUVASTATIN CALCIUM
     Dosage: UNK
  271. ROSUVASTATIN CALCIUM [Concomitant]
     Active Substance: ROSUVASTATIN CALCIUM
     Dosage: 5 MILLIGRAM
     Route: 048
     Dates: start: 201806, end: 201911
  272. CETIRIZINE [Concomitant]
     Active Substance: CETIRIZINE HYDROCHLORIDE
     Indication: Prophylaxis
     Dosage: 10 MILLIGRAM, (1 TABLET AT NIGHT FOR 3 DAYS)(PHARMACEUTICAL DOSAGE FORM 245)
     Route: 048
     Dates: start: 20151203
  273. CETIRIZINE [Concomitant]
     Active Substance: CETIRIZINE HYDROCHLORIDE
     Indication: Antiviral prophylaxis
     Dosage: 10 MILLIGRAM, (1 TABLET AT NIGHT FOR 3 DAYS)(DOSAGE FORM:245)
     Dates: start: 20151203
  274. CETIRIZINE [Concomitant]
     Active Substance: CETIRIZINE HYDROCHLORIDE
     Dosage: 10 MG, QN (1 TABLET AT NIGHT FOR 3 DAYS) (DOSAGE FORM: 245)
     Route: 048
     Dates: start: 20151203
  275. CETIRIZINE [Concomitant]
     Active Substance: CETIRIZINE HYDROCHLORIDE
     Dosage: 10 MG, UNK 1 TABLET AT NIGHT FOR 3 DAYS)
     Route: 048
     Dates: start: 20151203
  276. CETIRIZINE [Concomitant]
     Active Substance: CETIRIZINE HYDROCHLORIDE
     Dosage: 1 TABLET AT NIGHT FOR 3 DAYS
     Route: 048
     Dates: start: 20151203
  277. CETIRIZINE [Concomitant]
     Active Substance: CETIRIZINE HYDROCHLORIDE
     Indication: Antiviral prophylaxis
     Dosage: 10 MG, 1 TABLET AT NIGHT FOR 3 DAYS (DOSE FORM: 245)
     Route: 048
     Dates: start: 20151203
  278. CETIRIZINE [Concomitant]
     Active Substance: CETIRIZINE HYDROCHLORIDE
     Indication: Prophylaxis
     Dosage: 10 MG, 1 TABLET AT NIGHT FOR 3 DAYS (DOSE FORM: 245)
     Route: 048
     Dates: start: 20151203
  279. CLOPIDOGREL [Concomitant]
     Active Substance: CLOPIDOGREL BISULFATE
     Indication: Product used for unknown indication
     Dosage: UNK (PHARMACEUTICAL DOSAGE FORM 245)
     Route: 048
     Dates: start: 20170701
  280. CLOPIDOGREL [Concomitant]
     Active Substance: CLOPIDOGREL BISULFATE
     Dosage: UNK
     Route: 048
     Dates: start: 20170701
  281. CLOPIDOGREL [Concomitant]
     Active Substance: CLOPIDOGREL BISULFATE
     Indication: Product used for unknown indication
     Dosage: UNK
     Route: 048
     Dates: start: 20170701
  282. CLOPIDOGREL [Concomitant]
     Active Substance: CLOPIDOGREL BISULFATE
     Dosage: UNK (DOSE FORM: 245)
     Route: 048
     Dates: start: 20170701
  283. ASPIRIN [Concomitant]
     Active Substance: ASPIRIN
     Indication: Product used for unknown indication
     Dosage: 75 MG, EVERY 1 DAY (DOSE FORM: 245)
     Route: 048
     Dates: start: 20170523, end: 20170701
  284. ASPIRIN [Concomitant]
     Active Substance: ASPIRIN
     Dosage: DOSAGE FORM: 245
  285. ASPIRIN [Concomitant]
     Active Substance: ASPIRIN
     Dosage: 75 MG, EVERY 1 DAY/QD (DOSE FORM: 245)
     Route: 065
     Dates: start: 20170523, end: 20170701
  286. ASPIRIN [Concomitant]
     Active Substance: ASPIRIN
     Dosage: 75 MG, EVERY 1 DAY/QD (DOSE FORM: 245)
     Route: 065
     Dates: start: 20170523, end: 20170701
  287. ASPIRIN [Concomitant]
     Active Substance: ASPIRIN
     Dosage: UNK
  288. ASPIRIN [Concomitant]
     Active Substance: ASPIRIN
     Dosage: UNK (DOSE FORM: 245)
     Route: 065
  289. EZETIMIBE [Concomitant]
     Active Substance: EZETIMIBE
     Indication: Product used for unknown indication
     Dosage: UNK (DOSE FORM:245) START: 2019
     Route: 048
     Dates: start: 2019
  290. EZETIMIBE [Concomitant]
     Active Substance: EZETIMIBE
     Dosage: UNK
     Route: 048
     Dates: start: 2019
  291. EZETIMIBE [Concomitant]
     Active Substance: EZETIMIBE
     Indication: Product used for unknown indication
     Dosage: UNK
     Route: 048
     Dates: start: 2019
  292. EZETIMIBE [Concomitant]
     Active Substance: EZETIMIBE
     Dosage: UNK (DOSE FORM: 245)
     Route: 048
     Dates: start: 2019
  293. LANSOPRAZOLE [Concomitant]
     Active Substance: LANSOPRAZOLE
     Indication: Product used for unknown indication
     Dosage: 30 MG, EVERY 1 DAY (DOSE FORM: 5)(CUMULATIVE DOSE TO FIRST REACTION: 14010.0 MG)
     Route: 048
     Dates: start: 20170312
  294. LANSOPRAZOLE [Concomitant]
     Active Substance: LANSOPRAZOLE
     Dosage: 30 MILLIGRAM, QD, (START 12-MAR-2017)(CUM DOSE : 14010.0 MG)
     Route: 048
     Dates: start: 20170312
  295. LANSOPRAZOLE [Concomitant]
     Active Substance: LANSOPRAZOLE
     Dosage: 30 MILLIGRAM, QD
     Route: 048
     Dates: start: 20170312
  296. LANSOPRAZOLE [Concomitant]
     Active Substance: LANSOPRAZOLE
     Dosage: 30 MILLIGRAM, QD, (30 MG, 1X/DAY) (DOSAGE FORM:5)
     Route: 048
     Dates: start: 20170312
  297. LANSOPRAZOLE [Concomitant]
     Active Substance: LANSOPRAZOLE
     Dosage: 30 MG, 1X/DAY
     Route: 048
     Dates: start: 20170312
  298. LANSOPRAZOLE [Concomitant]
     Active Substance: LANSOPRAZOLE
     Indication: Product used for unknown indication
     Dosage: 30 MILLIGRAM, QD
     Route: 048
     Dates: start: 20170312
  299. LANSOPRAZOLE [Concomitant]
     Active Substance: LANSOPRAZOLE
     Dosage: 30 MG, DRUG INTERVAL 1 DAY (DOSE FORM: 5)
     Route: 048
     Dates: start: 20170312
  300. LANSOPRAZOLE [Concomitant]
     Active Substance: LANSOPRAZOLE
     Dosage: 30 MG, QD (DOSE FORM: 5, CUMULATIVE DOSE: 14010.0 MG)
     Route: 048
     Dates: start: 20170312
  301. LORATADINE [Concomitant]
     Active Substance: LORATADINE
     Indication: Product used for unknown indication
     Dosage: UNK (DOSAGE FORM 245)
     Route: 048
     Dates: start: 20151119, end: 20151217
  302. LORATADINE [Concomitant]
     Active Substance: LORATADINE
     Dosage: UNK
     Route: 048
     Dates: start: 20151119, end: 20151217
  303. LORATADINE [Concomitant]
     Active Substance: LORATADINE
     Indication: Product used for unknown indication
     Dosage: UNK (DOSE FORM: 245)
     Route: 048
     Dates: start: 20151119, end: 20151217
  304. CHLORHEXIDINE GLUCONATE [Concomitant]
     Active Substance: CHLORHEXIDINE GLUCONATE
     Indication: Prophylaxis
     Dosage: 4(NO UNIT REPORTED) EVERY 1 DAY (MOUTHWASH)
     Route: 048
     Dates: start: 20151105
  305. CHLORHEXIDINE GLUCONATE [Concomitant]
     Active Substance: CHLORHEXIDINE GLUCONATE
     Dosage: EVERY 0.25 DAY (MOUTHWASH)
     Route: 048
     Dates: start: 20151105
  306. CHLORHEXIDINE GLUCONATE [Concomitant]
     Active Substance: CHLORHEXIDINE GLUCONATE
     Dosage: 4 UNK, 1X/DAY (MOUTHWASH)
     Route: 048
     Dates: start: 20151105
  307. CHLORHEXIDINE GLUCONATE [Concomitant]
     Active Substance: CHLORHEXIDINE GLUCONATE
     Dosage: 4 DF EVERY 1 DAY/DAILY (MOUTHWASH)
     Route: 048
     Dates: start: 20151105
  308. CHLORHEXIDINE GLUCONATE [Concomitant]
     Active Substance: CHLORHEXIDINE GLUCONATE
     Dosage: 1 EVERY 1 DAY/ UNK UNK, QD
     Route: 048
     Dates: start: 20151105
  309. CHLORHEXIDINE GLUCONATE [Concomitant]
     Active Substance: CHLORHEXIDINE GLUCONATE
     Dosage: UNK, (EVERY 0.25 DAY (MOUTHWASH)
     Route: 048
     Dates: start: 20151105
  310. CHLORHEXIDINE GLUCONATE [Concomitant]
     Active Substance: CHLORHEXIDINE GLUCONATE
     Dosage: UNK, (4 EVERY 1 DAY (MOUTHWASH))(DOSAGE FORM:135)
     Route: 048
     Dates: start: 20151105
  311. CHLORHEXIDINE GLUCONATE [Concomitant]
     Active Substance: CHLORHEXIDINE GLUCONATE
     Dosage: UNK, (4 UNK, 1X/DAY (MOUTHWASH)) (DOSAGE FORM:135)
     Route: 048
     Dates: start: 20151105
  312. CHLORHEXIDINE GLUCONATE [Concomitant]
     Active Substance: CHLORHEXIDINE GLUCONATE
     Dosage: UNK UNK, (4(NO UNIT REPORTED) EVERY 1 DAY (MOUTHWASH))
     Route: 065
     Dates: start: 20151105
  313. CHLORHEXIDINE GLUCONATE [Concomitant]
     Active Substance: CHLORHEXIDINE GLUCONATE
     Dosage: EVERY 0.25 DAY (MOUTHWASH)
     Route: 048
     Dates: start: 20151105
  314. CHLORHEXIDINE GLUCONATE [Concomitant]
     Active Substance: CHLORHEXIDINE GLUCONATE
     Dosage: EVERY 0.25 DAY (MOUTHWASH)
     Route: 065
     Dates: start: 20151105
  315. CHLORHEXIDINE GLUCONATE [Concomitant]
     Active Substance: CHLORHEXIDINE GLUCONATE
     Dosage: UNK UNK, (EVERY 0.25 DAY (MOUTHWASH))
     Route: 048
     Dates: start: 20151105
  316. CHLORHEXIDINE GLUCONATE [Concomitant]
     Active Substance: CHLORHEXIDINE GLUCONATE
     Dosage: 4 UNK, QD (MOUTHWASH) START 05-NOV-2015
     Route: 048
     Dates: start: 20151105
  317. CHLORHEXIDINE GLUCONATE [Concomitant]
     Active Substance: CHLORHEXIDINE GLUCONATE
     Dosage: UNK, (4 EVERY 1 DAY (MOUTHWASH))
     Route: 048
     Dates: start: 20151105
  318. CHLORHEXIDINE GLUCONATE [Concomitant]
     Active Substance: CHLORHEXIDINE GLUCONATE
     Dosage: 4 UNK, QD (MOUTHWASH) START 05-NOV-2015
     Route: 048
     Dates: start: 20151105
  319. CHLORHEXIDINE GLUCONATE [Concomitant]
     Active Substance: CHLORHEXIDINE GLUCONATE
     Dosage: 4 ABSENT, DRUG INTERVAL 1 DAY, MOUTH WASH (DOSE FORM: 135)
     Route: 048
     Dates: start: 20151105
  320. CHLORHEXIDINE GLUCONATE [Concomitant]
     Active Substance: CHLORHEXIDINE GLUCONATE
     Dosage: UNK, (4 EVERY 1 DAY (MOUTHWASH))
     Route: 048
     Dates: start: 20151105
  321. TRAMADOL [Concomitant]
     Active Substance: TRAMADOL
     Indication: Prophylaxis
     Dosage: 50 MG (DOSE FORM: 5)
     Route: 048
     Dates: start: 20151105
  322. CHLORHEXIDINE [Concomitant]
     Active Substance: CHLORHEXIDINE
     Indication: Prophylaxis
     Dosage: UNK UNK, QD; 135 DOSE FORM
     Route: 048
     Dates: start: 20151105
  323. CHLORHEXIDINE [Concomitant]
     Active Substance: CHLORHEXIDINE
     Dosage: 4DF, QD (DOSAGE FORM: 35)
     Route: 048
     Dates: start: 20151105
  324. ASPIRIN [Concomitant]
     Active Substance: ASPIRIN
     Indication: Product used for unknown indication
     Dosage: 75 MILLIGRAM, QD
     Route: 048
     Dates: start: 20170523, end: 20170701
  325. ASPIRIN [Concomitant]
     Active Substance: ASPIRIN
     Dosage: 75 MG, 1X/DAY
     Route: 048
     Dates: start: 20170523, end: 20170701
  326. ASPIRIN [Concomitant]
     Active Substance: ASPIRIN
     Indication: Product used for unknown indication
     Dosage: 75 MG, QD
     Route: 048
     Dates: start: 20170523, end: 20170701

REACTIONS (27)
  - Dysuria [Recovered/Resolved]
  - Chest discomfort [Recovered/Resolved]
  - Cystitis noninfective [Recovered/Resolved]
  - Defaecation urgency [Recovered/Resolved]
  - Palmar erythema [Recovered/Resolved]
  - Tendonitis [Not Recovered/Not Resolved]
  - Escherichia test positive [Not Recovered/Not Resolved]
  - Neuropathy peripheral [Recovered/Resolved]
  - Erythema [Recovered/Resolved]
  - Dyspnoea [Recovered/Resolved]
  - Hypersensitivity [Recovered/Resolved]
  - Anaphylactic reaction [Recovered/Resolved]
  - Bacterial test positive [Recovered/Resolved]
  - Diarrhoea [Recovered/Resolved]
  - Fatigue [Recovered/Resolved]
  - Malaise [Recovered/Resolved]
  - Rash [Recovered/Resolved]
  - Tremor [Recovered/Resolved]
  - Urinary tract infection [Recovered/Resolved]
  - Urosepsis [Recovered/Resolved]
  - Mucosal inflammation [Recovered/Resolved]
  - Hypertension [Recovered/Resolved]
  - Neuropathy peripheral [Recovered/Resolved]
  - Neuropathy peripheral [Recovered/Resolved]
  - Neuropathy peripheral [Recovered/Resolved]
  - Neuropathy peripheral [Recovered/Resolved]
  - Fatigue [Not Recovered/Not Resolved]

NARRATIVE: CASE EVENT DATE: 20151201
